FAERS Safety Report 8621975-0 (Version None)
Quarter: 2012Q3

REPORT INFORMATION
  Report Type: 
  Country: None (occurrence: None)
  Receive Date: 20120823
  Receipt Date: 20120823
  Transmission Date: 20120928
  Serious: Yes (Hospitalization, Other)
  Sender: FDA-Public Use
  Company Number: None

PATIENT
  Sex: Female
  Weight: 82 kg

DRUGS (3)
  1. SIMVASTATIN [Suspect]
     Indication: DYSLIPIDAEMIA
     Dosage: 40 MG DAILY AT BEDTIME PO
     Route: 048
  2. DAPTOMYCIN [Suspect]
     Indication: INFECTION
     Dosage: 500 MG Q24H IV
     Route: 042
     Dates: start: 20120104, end: 20120117
  3. DAPTOMYCIN [Suspect]
     Indication: ABSCESS
     Dosage: 500 MG Q24H IV
     Route: 042
     Dates: start: 20120104, end: 20120117

REACTIONS (9)
  - PAIN IN EXTREMITY [None]
  - ASPARTATE AMINOTRANSFERASE INCREASED [None]
  - DYSPNOEA [None]
  - MALAISE [None]
  - CHEST PAIN [None]
  - BLOOD CREATINE PHOSPHOKINASE INCREASED [None]
  - ASTHENIA [None]
  - DIZZINESS [None]
  - ALANINE AMINOTRANSFERASE INCREASED [None]
